FAERS Safety Report 14116117 (Version 3)
Quarter: 2018Q4

REPORT INFORMATION
  Report Type: Spontaneous
  Country: IT (occurrence: IT)
  Receive Date: 20171023
  Receipt Date: 20181129
  Transmission Date: 20190204
  Serious: Yes (Other)
  Sender: FDA-Public Use
  Company Number: IT-PFIZER INC-2017453531

PATIENT
  Age: 60 Year
  Sex: Female

DRUGS (1)
  1. ADRIBLASTINA [Suspect]
     Active Substance: DOXORUBICIN HYDROCHLORIDE
     Indication: BREAST CANCER
     Dosage: 1 G, CYCLIC
     Route: 042
     Dates: start: 20170426, end: 20170829

REACTIONS (1)
  - Systolic dysfunction [Recovering/Resolving]

NARRATIVE: CASE EVENT DATE: 20171004
